FAERS Safety Report 24650554 (Version 1)
Quarter: 2024Q4

REPORT INFORMATION
  Report Type: Spontaneous
  Country: JP (occurrence: JP)
  Receive Date: 20241122
  Receipt Date: 20241122
  Transmission Date: 20250114
  Serious: Yes (Death, Other)
  Sender: BOEHRINGER INGELHEIM
  Company Number: JP-NBI-2024-BI-063627

PATIENT
  Age: 67 Year
  Sex: Female

DRUGS (2)
  1. GILOTRIF [Suspect]
     Active Substance: AFATINIB
     Indication: Lung adenocarcinoma recurrent
  2. GILOTRIF [Suspect]
     Active Substance: AFATINIB
     Indication: Post procedural complication

REACTIONS (5)
  - Death [Fatal]
  - Hydronephrosis [Recovering/Resolving]
  - Metastases to peritoneum [Unknown]
  - Hydroureter [Recovering/Resolving]
  - Renal impairment [Recovering/Resolving]
